FAERS Safety Report 16534033 (Version 1)
Quarter: 2019Q3

REPORT INFORMATION
  Report Type: Spontaneous
  Country: CN (occurrence: CN)
  Receive Date: 20190705
  Receipt Date: 20190705
  Transmission Date: 20191004
  Serious: Yes (Other)
  Sender: FDA-Public Use
  Company Number: CN-FRESENIUS KABI-FK201907335

PATIENT
  Age: 62 Year
  Sex: Male
  Weight: 71.8 kg

DRUGS (5)
  1. NOVAMIN (AMINO ACIDS NOS) [Suspect]
     Active Substance: AMINO ACIDS
     Indication: NUTRITIONAL SUPPLEMENTATION
     Dosage: 250ML, QD
     Route: 041
     Dates: start: 20190618, end: 20190618
  2. LIPOVENOES MCT 20% [Suspect]
     Active Substance: EGG PHOSPHOLIPIDS\GLYCERIN\MEDIUM-CHAIN TRIGLYCERIDES\SOYBEAN OIL
     Indication: NUTRITIONAL SUPPLEMENTATION
     Dosage: 250ML, QD
     Route: 041
     Dates: start: 20190618, end: 20190618
  3. AMOXICILLIN SODIUM/CLAVULANATE POTASSIUM [Concomitant]
     Indication: INFECTION
     Dosage: 1.8 GRAM, BID
     Route: 041
     Dates: start: 20190617, end: 20190624
  4. COIX LACRYMA-JOBI SUBSP. MA-YUEN SEED [Concomitant]
     Indication: LUNG NEOPLASM MALIGNANT
     Dosage: 10 GRAM, QD
     Route: 041
     Dates: start: 20190604, end: 20190624
  5. GRANULOCYTE COLONY STIMULATING FACTOR [Concomitant]
     Active Substance: GRANULOCYTE COLONY-STIMULATING FACTOR NOS
     Indication: BONE MARROW FAILURE
     Dosage: 200 UG, QD
     Route: 058
     Dates: start: 20190617, end: 20190623

REACTIONS (4)
  - Headache [Recovered/Resolved]
  - Pyrexia [Recovered/Resolved]
  - Nausea [Recovered/Resolved]
  - Temperature intolerance [Recovered/Resolved]

NARRATIVE: CASE EVENT DATE: 20190618
